FAERS Safety Report 8937592 (Version 1)
Quarter: 2012Q4

REPORT INFORMATION
  Report Type: 
  Country: US (occurrence: US)
  Receive Date: 20121130
  Receipt Date: 20121130
  Transmission Date: 20130627
  Serious: No
  Sender: FDA-Public Use
  Company Number: US-B.I. PHARMACEUTICALS,INC./RIDGEFIELD-2012-BI-01449BP

PATIENT
  Sex: Female

DRUGS (4)
  1. SPIRIVA [Suspect]
     Indication: LUNG INFECTION
     Dosage: 18 mcg
     Route: 055
     Dates: start: 201211
  2. SINGULAIR [Concomitant]
     Indication: OBSTRUCTIVE AIRWAYS DISORDER
     Route: 055
  3. ALBUTEROL [Concomitant]
     Indication: OBSTRUCTIVE AIRWAYS DISORDER
     Route: 055
  4. PULMICORT [Concomitant]
     Indication: OBSTRUCTIVE AIRWAYS DISORDER
     Route: 055

REACTIONS (5)
  - Nightmare [Not Recovered/Not Resolved]
  - Night sweats [Not Recovered/Not Resolved]
  - Oropharyngeal pain [Not Recovered/Not Resolved]
  - Feeling abnormal [Not Recovered/Not Resolved]
  - Pyrexia [Not Recovered/Not Resolved]
